FAERS Safety Report 12981467 (Version 1)
Quarter: 2016Q4

REPORT INFORMATION
  Report Type: Spontaneous
  Country: BE (occurrence: BE)
  Receive Date: 20161129
  Receipt Date: 20161129
  Transmission Date: 20170207
  Serious: Yes (Hospitalization)
  Sender: FDA-Public Use
  Company Number: BE-ASTRAZENECA-2016SF24603

PATIENT
  Sex: Female

DRUGS (1)
  1. NEXIAM [Suspect]
     Active Substance: ESOMEPRAZOLE
     Dosage: 20.0MG UNKNOWN
     Route: 048

REACTIONS (3)
  - Urticaria [Unknown]
  - Hypersensitivity [Unknown]
  - Pruritus [Unknown]
